FAERS Safety Report 23245979 (Version 1)
Quarter: 2023Q4

REPORT INFORMATION
  Report Type: Spontaneous
  Country: US (occurrence: None)
  Receive Date: 20231129
  Receipt Date: 20231129
  Transmission Date: 20240110
  Serious: Yes (Disabling, Other)
  Sender: FDA-Public Use
  Company Number: None

PATIENT
  Age: 77 Year
  Sex: Female
  Weight: 69.75 kg

DRUGS (13)
  1. TEPEZZA [Suspect]
     Active Substance: TEPROTUMUMAB-TRBW
     Indication: Endocrine ophthalmopathy
     Dosage: OTHER QUANTITY : 8 8;?FREQUENCY : MONTHLY;?
     Route: 042
  2. Levothyrozine [Concomitant]
  3. Ibersartan [Concomitant]
  4. ATORVASTATIN [Concomitant]
     Active Substance: ATORVASTATIN
  5. AMLODIPINE [Concomitant]
     Active Substance: AMLODIPINE BESYLATE
  6. HYDRALAZINE [Concomitant]
     Active Substance: HYDRALAZINE HYDROCHLORIDE
  7. LASIX [Concomitant]
     Active Substance: FUROSEMIDE
  8. LATANOPROST [Concomitant]
     Active Substance: LATANOPROST
  9. HYDROXYCHLOROQUINE [Concomitant]
     Active Substance: HYDROXYCHLOROQUINE
  10. Cllindamcin [Concomitant]
  11. VITAMINS [Concomitant]
     Active Substance: VITAMINS
  12. VITAMIN D [Concomitant]
     Active Substance: VITAMIN D NOS
  13. Dry eye drops [Concomitant]

REACTIONS (6)
  - Hypoacusis [None]
  - Dysphonia [None]
  - Hyperacusis [None]
  - Aphasia [None]
  - Deafness [None]
  - Treatment failure [None]

NARRATIVE: CASE EVENT DATE: 20230605
